FAERS Safety Report 10261865 (Version 1)
Quarter: 2014Q2

REPORT INFORMATION
  Report Type: Spontaneous
  Country: JP (occurrence: JP)
  Receive Date: 20140626
  Receipt Date: 20140626
  Transmission Date: 20141212
  Serious: Yes (Life-Threatening, Hospitalization)
  Sender: FDA-Public Use
  Company Number: PHHY2014JP076404

PATIENT
  Age: 61 Year
  Sex: Male

DRUGS (1)
  1. PREDNISOLONE [Suspect]
     Dosage: 1 MG/KG/DAY

REACTIONS (3)
  - Pulmonary haemorrhage [Recovered/Resolved]
  - Acute respiratory failure [Recovered/Resolved]
  - Drug effect incomplete [Unknown]
